FAERS Safety Report 21332451 (Version 2)
Quarter: 2022Q3

REPORT INFORMATION
  Report Type: Report from Study
  Country: FR (occurrence: FR)
  Receive Date: 20220914
  Receipt Date: 20220923
  Transmission Date: 20221027
  Serious: Yes (Hospitalization, Other)
  Sender: FDA-Public Use
  Company Number: FR-BRISTOL-MYERS SQUIBB COMPANY-2022-103837

PATIENT
  Sex: Male
  Weight: 073 kg

DRUGS (7)
  1. CISPLATIN [Suspect]
     Active Substance: CISPLATIN
     Indication: Squamous cell carcinoma of head and neck
     Dosage: 100 MG/M2
     Route: 065
     Dates: start: 20220718
  2. CISPLATIN [Suspect]
     Active Substance: CISPLATIN
     Dosage: 100MG/M2
     Route: 065
     Dates: start: 20220808
  3. CISPLATIN [Suspect]
     Active Substance: CISPLATIN
     Dosage: 188 MG/M2
     Route: 065
     Dates: start: 20220830
  4. NIVOLUMAB [Suspect]
     Active Substance: NIVOLUMAB
     Indication: Squamous cell carcinoma of head and neck
     Dates: start: 20220708
  5. NIVOLUMAB [Suspect]
     Active Substance: NIVOLUMAB
     Dates: start: 20220718
  6. NIVOLUMAB [Suspect]
     Active Substance: NIVOLUMAB
     Dates: start: 20220808
  7. NIVOLUMAB [Suspect]
     Active Substance: NIVOLUMAB
     Route: 065
     Dates: start: 20220830

REACTIONS (1)
  - Acute kidney injury [Recovered/Resolved]

NARRATIVE: CASE EVENT DATE: 20220906
